FAERS Safety Report 21784604 (Version 1)
Quarter: 2022Q4

REPORT INFORMATION
  Report Type: Report from Study
  Country: AR (occurrence: AR)
  Receive Date: 20221227
  Receipt Date: 20221227
  Transmission Date: 20230112
  Serious: Yes (Other)
  Sender: FDA-Public Use
  Company Number: AR-ABBVIE-4250186

PATIENT
  Age: 44 Year
  Sex: Female

DRUGS (3)
  1. HUMIRA [Suspect]
     Active Substance: ADALIMUMAB
     Indication: Psoriasis
     Route: 058
     Dates: start: 2022
  2. HUMIRA [Suspect]
     Active Substance: ADALIMUMAB
     Route: 058
     Dates: start: 202211
  3. HUMIRA [Suspect]
     Active Substance: ADALIMUMAB
     Route: 058
     Dates: start: 20170115, end: 202209

REACTIONS (9)
  - Uterine leiomyoma [Recovered/Resolved]
  - Neuropathy peripheral [Recovering/Resolving]
  - Vaginal haemorrhage [Unknown]
  - Ovarian fibroma [Recovered/Resolved]
  - Cholelithiasis [Not Recovered/Not Resolved]
  - Post procedural swelling [Unknown]
  - Procedural pain [Unknown]
  - Vaginal infection [Recovered/Resolved]
  - Psoriasis [Not Recovered/Not Resolved]

NARRATIVE: CASE EVENT DATE: 20220901
